FAERS Safety Report 13859497 (Version 1)
Quarter: 2017Q3

REPORT INFORMATION
  Report Type: Spontaneous
  Country: US (occurrence: US)
  Receive Date: 20170811
  Receipt Date: 20170811
  Transmission Date: 20171127
  Serious: No
  Sender: FDA-Public Use
  Company Number: None

PATIENT
  Age: 4 Year
  Sex: Male
  Weight: 13.95 kg

DRUGS (2)
  1. ROCEPHIN [Suspect]
     Active Substance: CEFTRIAXONE SODIUM
     Indication: EAR INFECTION
     Dosage: ?          OTHER FREQUENCY:1 TIME;?
     Route: 030
     Dates: start: 20170804, end: 20170804
  2. PESIDONE (STEROID) [Concomitant]

REACTIONS (3)
  - Pain [None]
  - Urticaria [None]
  - Diarrhoea [None]

NARRATIVE: CASE EVENT DATE: 20170806
